FAERS Safety Report 22258744 (Version 2)
Quarter: 2023Q2

REPORT INFORMATION
  Report Type: Other
  Country: DE (occurrence: None)
  Receive Date: 20230427
  Receipt Date: 20230601
  Transmission Date: 20230722
  Serious: Yes (Hospitalization)
  Sender: FDA-Public Use
  Company Number: DE-ROCHE-2552257

PATIENT
  Age: 29 Year
  Sex: Female

DRUGS (7)
  1. OCREVUS [Suspect]
     Active Substance: OCRELIZUMAB
     Indication: Relapsing-remitting multiple sclerosis
     Dosage: FREQUENCY WAS 189 DAYS
     Route: 042
     Dates: start: 20190806
  2. OCREVUS [Suspect]
     Active Substance: OCRELIZUMAB
     Route: 042
     Dates: start: 20190819
  3. OCREVUS [Suspect]
     Active Substance: OCRELIZUMAB
     Route: 042
     Dates: start: 20200213
  4. OCREVUS [Suspect]
     Active Substance: OCRELIZUMAB
     Route: 042
     Dates: start: 20200813
  5. BACLOFEN [Concomitant]
     Active Substance: BACLOFEN
     Dosage: AS REQUIRED
  6. METAMIZOLE [Concomitant]
     Active Substance: METAMIZOLE
     Dosage: AS REQUIRED
  7. CANNABIDIOL [Concomitant]
     Active Substance: CANNABIDIOL
     Dosage: IN ELECTRONIC CIGARETTE

REACTIONS (8)
  - Urinary tract infection [Recovered/Resolved]
  - Pyelitis [Recovered/Resolved]
  - Insomnia [Recovered/Resolved]
  - Restlessness [Recovered/Resolved]
  - Headache [Recovered/Resolved]
  - Sensory disturbance [Not Recovered/Not Resolved]
  - Gastrointestinal infection [Recovered/Resolved]
  - Drug ineffective [Unknown]

NARRATIVE: CASE EVENT DATE: 20200213
